FAERS Safety Report 15256091 (Version 1)
Quarter: 2018Q4

REPORT INFORMATION
  Report Type: Other
  Country: CA (occurrence: CA)
  Receive Date: 20180808
  Receipt Date: 20180808
  Transmission Date: 20190204
  Serious: Yes (Other)
  Sender: FDA-Public Use
  Company Number: CA-PFIZER INC-2018318543

PATIENT
  Sex: Female

DRUGS (12)
  1. GLYCOPYRRONIUM BROMIDE [Suspect]
     Active Substance: GLYCOPYRRONIUM
     Dosage: UNK
  2. EPHEDRINE. [Suspect]
     Active Substance: EPHEDRINE
     Dosage: UNK
  3. LACTATED RINGERS SOLUTION [Suspect]
     Active Substance: CALCIUM CHLORIDE\POTASSIUM CHLORIDE\SODIUM CHLORIDE\SODIUM LACTATE
     Dosage: UNK
     Route: 042
  4. SODIUM CITRATE. [Suspect]
     Active Substance: SODIUM CITRATE
     Dosage: UNK
  5. MORPHINE SULFATE. [Suspect]
     Active Substance: MORPHINE SULFATE
     Dosage: UNK
  6. HETASTARCH. [Suspect]
     Active Substance: HETASTARCH
     Dosage: UNK
  7. LIDOCAINE HCL [Suspect]
     Active Substance: LIDOCAINE HYDROCHLORIDE
     Dosage: UNK
  8. EPINEPHRINE. [Suspect]
     Active Substance: EPINEPHRINE
     Dosage: UNK
  9. LACTATED RINGERS SOLUTION [Suspect]
     Active Substance: CALCIUM CHLORIDE\POTASSIUM CHLORIDE\SODIUM CHLORIDE\SODIUM LACTATE
     Dosage: UNK
  10. PHENYLEPHRINE [Suspect]
     Active Substance: PHENYLEPHRINE\PHENYLEPHRINE HYDROCHLORIDE
     Dosage: UNK
  11. PHENYLEPHRINE HCL [Suspect]
     Active Substance: PHENYLEPHRINE HYDROCHLORIDE
     Dosage: UNK
  12. BUPIVACAINE HYDROCHLORIDE/FENTANYL CITRATE [Suspect]
     Active Substance: BUPIVACAINE HYDROCHLORIDE\FENTANYL CITRATE
     Dosage: UNK

REACTIONS (4)
  - Bradycardia [Unknown]
  - Live birth [Unknown]
  - Exposure during pregnancy [Unknown]
  - Hypotension [Unknown]
